FAERS Safety Report 23783930 (Version 1)
Quarter: 2024Q2

REPORT INFORMATION
  Report Type: Other
  Country: US (occurrence: US)
  Receive Date: 20240425
  Receipt Date: 20240425
  Transmission Date: 20240716
  Serious: Yes (Other)
  Sender: FDA-Public Use
  Company Number: US-BoehringerIngelheim-2024-BI-022256

PATIENT
  Age: 60 Year
  Sex: Male

DRUGS (1)
  1. ALTEPLASE [Suspect]
     Active Substance: ALTEPLASE
     Indication: Ischaemic stroke
     Route: 065

REACTIONS (4)
  - Subarachnoid haemorrhage [Unknown]
  - Atrial thrombosis [Unknown]
  - Peripheral artery occlusion [Unknown]
  - Acute myocardial infarction [Unknown]
